FAERS Safety Report 4265749-2 (Version None)
Quarter: 2004Q1

REPORT INFORMATION
  Report Type: 
  Country: None (occurrence: None)
  Receive Date: 20040107
  Receipt Date: 20031223
  Transmission Date: 20041129
  Serious: Yes (Death)
  Sender: FDA-Public Use
  Company Number: FR-ROCHE-354671

PATIENT
  Age: 28 Year
  Sex: Male

DRUGS (8)
  1. CELLCEPT [Suspect]
     Route: 048
     Dates: start: 20010215, end: 20030716
  2. PROGRAF [Suspect]
     Route: 048
     Dates: start: 20010215, end: 20020815
  3. PROGRAF [Suspect]
     Route: 048
     Dates: start: 20020815, end: 20021010
  4. PROGRAF [Suspect]
     Route: 048
     Dates: start: 20030315, end: 20030816
  5. PROGRAF [Suspect]
     Route: 048
     Dates: start: 20030829, end: 20031124
  6. RAPAMUNE [Suspect]
     Indication: DRUG USE FOR UNKNOWN INDICATION
     Route: 065
     Dates: start: 20030816, end: 20030829
  7. CORTANCYL [Suspect]
     Route: 048
     Dates: start: 20010215, end: 20031124
  8. NEORAL [Concomitant]
     Dates: start: 20021015

REACTIONS (8)
  - ACUTE RESPIRATORY DISTRESS SYNDROME [None]
  - CANDIDIASIS [None]
  - DIABETES MELLITUS [None]
  - INFECTION [None]
  - OVERDOSE [None]
  - PSEUDOMONAS INFECTION [None]
  - PULMONARY FIBROSIS [None]
  - RESPIRATORY FAILURE [None]
